FAERS Safety Report 22733791 (Version 11)
Quarter: 2024Q2

REPORT INFORMATION
  Report Type: Report from Study
  Country: US (occurrence: US)
  Receive Date: 20230721
  Receipt Date: 20240628
  Transmission Date: 20240715
  Serious: Yes (Other)
  Sender: FDA-Public Use
  Company Number: US-ACADIA PHARMACEUTICALS INC.-ACA-2023-TRF-002647

PATIENT
  Sex: Female

DRUGS (16)
  1. DAYBUE [Suspect]
     Active Substance: TROFINETIDE
     Indication: Rett syndrome
     Dosage: UNK
     Route: 065
     Dates: start: 20230623
  2. DAYBUE [Suspect]
     Active Substance: TROFINETIDE
     Dosage: UNK
     Route: 065
  3. DAYBUE [Suspect]
     Active Substance: TROFINETIDE
     Dosage: 15 MILLILITER, BID
     Route: 065
  4. DAYBUE [Suspect]
     Active Substance: TROFINETIDE
     Dosage: 20 MILLILITER, BID
     Route: 065
  5. DAYBUE [Suspect]
     Active Substance: TROFINETIDE
     Dosage: 30 MILLILITER, BID
     Route: 065
  6. DAYBUE [Suspect]
     Active Substance: TROFINETIDE
     Dosage: 60 MILLILITER
     Route: 065
     Dates: start: 20230902, end: 20230903
  7. DAYBUE [Suspect]
     Active Substance: TROFINETIDE
     Dosage: 30 MILLILITER
     Route: 065
  8. DAYBUE [Suspect]
     Active Substance: TROFINETIDE
     Dosage: 60 MILLILITER
     Route: 065
  9. DAYBUE [Suspect]
     Active Substance: TROFINETIDE
     Dosage: 15 MILLILITER, BID
     Route: 065
  10. DAYBUE [Suspect]
     Active Substance: TROFINETIDE
     Dosage: 10 MILLILITER
     Route: 065
  11. DAYBUE [Suspect]
     Active Substance: TROFINETIDE
     Dosage: 60 MILLILITER, BID
     Route: 065
  12. DAYBUE [Suspect]
     Active Substance: TROFINETIDE
     Dosage: 45 MILLILITER, BID
     Route: 065
  13. DAYBUE [Suspect]
     Active Substance: TROFINETIDE
     Dosage: 60 MILLILITER, BID
     Route: 065
  14. DAYBUE [Suspect]
     Active Substance: TROFINETIDE
     Dosage: 50 MILLILITER
     Route: 065
  15. IMODIUM [Suspect]
     Active Substance: LOPERAMIDE HYDROCHLORIDE
     Indication: Diarrhoea
     Route: 065
  16. KAOLIN [Suspect]
     Active Substance: KAOLIN
     Route: 065

REACTIONS (86)
  - Dystonia [Unknown]
  - Self-destructive behaviour [Unknown]
  - Intentional dose omission [Unknown]
  - Gastrooesophageal reflux disease [Unknown]
  - Flatulence [Unknown]
  - Flatulence [Unknown]
  - Adverse drug reaction [Unknown]
  - Somnolence [Unknown]
  - Weight decreased [Unknown]
  - Wrong technique in product usage process [Not Recovered/Not Resolved]
  - Product dose omission issue [Not Recovered/Not Resolved]
  - Therapeutic response unexpected [Not Recovered/Not Resolved]
  - Gastrooesophageal reflux disease [Recovering/Resolving]
  - Duodenitis [Unknown]
  - Constipation [Unknown]
  - Product dose omission issue [Unknown]
  - Treatment noncompliance [Unknown]
  - Flatulence [Recovering/Resolving]
  - Abdominal pain upper [Recovered/Resolved]
  - Gastritis [Unknown]
  - Speech disorder developmental [Recovering/Resolving]
  - Liver function test abnormal [Unknown]
  - Constipation [Unknown]
  - Behaviour disorder [Unknown]
  - Abdominal discomfort [Unknown]
  - Crying [Unknown]
  - Rash [Unknown]
  - Hepatic function abnormal [Unknown]
  - Weight decreased [Unknown]
  - Flatulence [Unknown]
  - Nausea [Unknown]
  - Flatulence [Unknown]
  - Frequent bowel movements [Unknown]
  - Wound infection bacterial [Unknown]
  - Pain [Unknown]
  - Dermatitis diaper [Unknown]
  - Product dose omission issue [Unknown]
  - Tearfulness [Unknown]
  - Crying [Unknown]
  - Abnormal behaviour [Unknown]
  - Somnolence [Unknown]
  - Underdose [Unknown]
  - Screaming [Unknown]
  - Ill-defined disorder [Unknown]
  - Rash erythematous [Unknown]
  - Liver function test increased [Unknown]
  - Arthropod bite [Unknown]
  - Muscle spasms [Unknown]
  - Product dose omission issue [Unknown]
  - Product dose omission issue [Recovered/Resolved]
  - Chemical burn [Unknown]
  - Frustration tolerance decreased [Unknown]
  - Weight decreased [Unknown]
  - Abdominal distension [Unknown]
  - Flatulence [Unknown]
  - Retching [Unknown]
  - Nausea [Unknown]
  - Aggression [Unknown]
  - Burns second degree [Unknown]
  - Gastrooesophageal reflux disease [Unknown]
  - Dehydration [Unknown]
  - Crying [Unknown]
  - Constipation [Unknown]
  - Dehydration [Unknown]
  - Underdose [Unknown]
  - Dermatitis diaper [Unknown]
  - Somnolence [Unknown]
  - Weight decreased [Unknown]
  - Product use complaint [Unknown]
  - Dehydration [Unknown]
  - Fatigue [Unknown]
  - Vomiting [Unknown]
  - Diarrhoea [Recovered/Resolved]
  - Diarrhoea [Unknown]
  - Vomiting [Unknown]
  - Vomiting [Unknown]
  - Decreased appetite [Unknown]
  - Vomiting [Recovered/Resolved]
  - Decreased appetite [Unknown]
  - Diarrhoea [Recovering/Resolving]
  - Decreased appetite [Not Recovered/Not Resolved]
  - Decreased appetite [Unknown]
  - Diarrhoea [Recovered/Resolved]
  - Vomiting [Unknown]
  - Decreased appetite [Unknown]
  - Diarrhoea [Unknown]

NARRATIVE: CASE EVENT DATE: 20230601
